FAERS Safety Report 15208137 (Version 6)
Quarter: 2018Q4

REPORT INFORMATION
  Report Type: Report from Study
  Country: CA (occurrence: CA)
  Receive Date: 20180727
  Receipt Date: 20181126
  Transmission Date: 20190204
  Serious: Yes (Other)
  Sender: FDA-Public Use
  Company Number: CA-SA-2018SA195143

PATIENT
  Age: 28 Year
  Sex: Female

DRUGS (12)
  1. GRAVOL [Concomitant]
     Active Substance: DIMENHYDRINATE
     Indication: PREMEDICATION
     Dosage: 50 MG
     Dates: start: 20180711
  2. ACYCLOVIR [ACICLOVIR] [Concomitant]
     Active Substance: ACYCLOVIR
     Dosage: 200 MG, BID
     Route: 048
  3. CIMETIDINE [Concomitant]
     Active Substance: CIMETIDINE
     Dosage: 200 MG
     Route: 048
     Dates: start: 20180711, end: 20180803
  4. BENADRYL [Concomitant]
     Active Substance: DIPHENHYDRAMINE HYDROCHLORIDE
     Indication: PREMEDICATION
     Dosage: 25 MG - 50 MG
     Route: 048
     Dates: start: 20180711
  5. METHYLPREDNISOLONE. [Suspect]
     Active Substance: METHYLPREDNISOLONE
     Indication: PREMEDICATION
     Dosage: 1 G
     Route: 042
     Dates: start: 20180711, end: 20180713
  6. ACYCLOVIR [ACICLOVIR] [Concomitant]
     Active Substance: ACYCLOVIR
     Indication: PREMEDICATION
     Dosage: 200 MG, BID
     Route: 048
     Dates: start: 20180711, end: 20180713
  7. ATIVAN [Concomitant]
     Active Substance: LORAZEPAM
     Indication: SLEEP DISORDER
     Dosage: UNK UNK, PRN
     Route: 048
     Dates: start: 20180710
  8. METHYLPREDNISOLONE. [Concomitant]
     Active Substance: METHYLPREDNISOLONE
     Indication: PREMEDICATION
     Dosage: 1 G
     Route: 041
     Dates: start: 20180803, end: 20180803
  9. ALEMTUZUMAB [Suspect]
     Active Substance: ALEMTUZUMAB
     Indication: RELAPSING-REMITTING MULTIPLE SCLEROSIS
     Dosage: 12 MG, QD
     Route: 041
     Dates: start: 20180711, end: 20180712
  10. ALEMTUZUMAB [Suspect]
     Active Substance: ALEMTUZUMAB
     Dosage: 12 MG, QD
     Route: 041
     Dates: start: 20180803, end: 20180803
  11. ACICLOVIR [Suspect]
     Active Substance: ACYCLOVIR
     Indication: PREMEDICATION
     Dosage: 200 MG, BID
     Route: 048
     Dates: start: 20180711, end: 20180713
  12. TYLENOL [Concomitant]
     Active Substance: ACETAMINOPHEN
     Dosage: 975 UNK
     Route: 048
     Dates: start: 20180711, end: 20180803

REACTIONS (59)
  - Haematocrit increased [Unknown]
  - Blood calcium decreased [Unknown]
  - Protein urine present [Recovered/Resolved]
  - Rhinorrhoea [Not Recovered/Not Resolved]
  - Flushing [Recovered/Resolved]
  - Asthenia [Recovered/Resolved]
  - Swelling face [Recovered/Resolved]
  - Malaise [Unknown]
  - Bradycardia [Recovered/Resolved]
  - Infrequent bowel movements [Unknown]
  - Influenza [Recovered/Resolved]
  - Cough [Recovered/Resolved]
  - Headache [Recovering/Resolving]
  - Stress [Recovered/Resolved]
  - Muscular weakness [Recovering/Resolving]
  - Urine analysis abnormal [Recovered/Resolved]
  - Red cell distribution width decreased [Not Recovered/Not Resolved]
  - Feeling abnormal [Recovered/Resolved]
  - Dysuria [Unknown]
  - Abdominal distension [Unknown]
  - Nitrite urine present [Recovered/Resolved]
  - Pruritus generalised [Recovered/Resolved]
  - Lymphocyte count decreased [Not Recovered/Not Resolved]
  - Hypersomnia [Unknown]
  - Abdominal pain lower [Unknown]
  - Urobilinogen urine increased [Recovered/Resolved]
  - Eosinophil count increased [Unknown]
  - Urine ketone body present [Recovered/Resolved]
  - Mean cell volume increased [Unknown]
  - Nausea [Recovered/Resolved]
  - Nasopharyngitis [Recovered/Resolved]
  - Urinary tract infection [Recovered/Resolved]
  - Vomiting [Recovered/Resolved]
  - Neutrophil count increased [Recovered/Resolved]
  - Specific gravity urine decreased [Recovered/Resolved]
  - White blood cells urine positive [Recovered/Resolved]
  - Fibrin D dimer increased [Unknown]
  - Tremor [Recovered/Resolved]
  - Muscle spasms [Recovered/Resolved]
  - Pain in extremity [Recovered/Resolved]
  - Chest pain [Recovered/Resolved]
  - Cystitis [Recovered/Resolved]
  - Weight decreased [Recovered/Resolved]
  - Oral pain [Recovered/Resolved]
  - Urinary retention [Recovered/Resolved]
  - Multiple sclerosis relapse [Not Recovered/Not Resolved]
  - Muscle tightness [Recovered/Resolved]
  - Peripheral coldness [Recovered/Resolved]
  - Band sensation [Not Recovered/Not Resolved]
  - Haemoglobin increased [Unknown]
  - Anion gap decreased [Unknown]
  - Nasal congestion [Recovered/Resolved]
  - Insomnia [Recovered/Resolved]
  - Urticaria [Recovered/Resolved]
  - Depression [Recovered/Resolved]
  - Decreased appetite [Recovered/Resolved]
  - Poor quality sleep [Recovered/Resolved]
  - Anxiety [Recovered/Resolved]
  - Fatigue [Recovered/Resolved]

NARRATIVE: CASE EVENT DATE: 20180711
